FAERS Safety Report 8781705 (Version 1)
Quarter: 2012Q4

REPORT INFORMATION
  Report Type: 
  Country: US (occurrence: US)
  Receive Date: 20120913
  Receipt Date: 20120913
  Transmission Date: 20130627
  Serious: No
  Sender: FDA-Public Use
  Company Number: US-VERTEX PHARMACEUTICAL INC.-AE-2012-006710

PATIENT
  Age: 51 Year
  Sex: Male
  Weight: 105 kg

DRUGS (9)
  1. INCIVEK [Suspect]
     Indication: HEPATITIS C
     Dosage: 750 mg, UNK
     Route: 048
     Dates: start: 20120506, end: 201208
  2. RIBAVIRIN [Concomitant]
     Indication: HEPATITIS C
     Route: 048
     Dates: start: 20120506
  3. PEGASYS [Concomitant]
     Indication: HEPATITIS C
     Route: 058
     Dates: start: 20120506
  4. ZOLOFT [Concomitant]
     Dosage: 100 mg, qd
     Route: 048
     Dates: start: 20120503
  5. TRIAMCINOLONE [Concomitant]
     Dosage: UNK, tid
     Dates: start: 20120508
  6. ASPIRIN [Concomitant]
     Dosage: 81 mg, qd
     Route: 048
  7. MOBIC [Concomitant]
     Dosage: 1 DF, qd
     Route: 048
  8. FLEXERIL                           /00428402/ [Concomitant]
     Route: 048
  9. TRAMADOL [Concomitant]
     Dosage: UNK, prn
     Route: 048

REACTIONS (2)
  - Rash generalised [Recovered/Resolved]
  - Pruritus [Unknown]
